FAERS Safety Report 9521016 (Version 1)
Quarter: 2013Q1

REPORT INFORMATION
  Report Type: Spontaneous
  Country: US (occurrence: None)
  Receive Date: 20130305
  Receipt Date: 20130305
  Transmission Date: 20140127
  Serious: Yes (Hospitalization, Other)
  Sender: FDA-Public Use
  Company Number: 163-21880-12081641

PATIENT
  Age: 51 Year
  Sex: Male
  Weight: 122.02 kg

DRUGS (10)
  1. REVLIMID [Suspect]
     Indication: NEOPLASM
     Route: 048
     Dates: start: 201204, end: 201207
  2. CYMBALTA (DULOXETINE HYDROCHLORIDE) [Concomitant]
  3. ACYCLOVIR (ACICLOVIR) (ACICLOVIR) [Concomitant]
  4. DOXYCYCLINE (DOXYCYCLINE) [Concomitant]
  5. K-DUR (POTASSIUM CHLORIDE) [Concomitant]
  6. METFORMIN (METFORMIN) [Concomitant]
  7. MIRALAX [Concomitant]
  8. MORPHINE (MORPHINE) (UNKNOWN) (MORPHINE) [Concomitant]
  9. ONDANSETRON (ONDANSETRON) [Concomitant]
  10. SENNA (SENNA) [Concomitant]

REACTIONS (7)
  - Hypersensitivity [None]
  - Decreased appetite [None]
  - Adverse drug reaction [None]
  - Cheilitis [None]
  - Heart rate irregular [None]
  - Hypotension [None]
  - Hypoaesthesia [None]
